FAERS Safety Report 6112329-X (Version None)
Quarter: 2009Q1

REPORT INFORMATION
  Report Type: 
  Country: None (occurrence: None)
  Receive Date: 20090311
  Receipt Date: 20090311
  Transmission Date: 20090719
  Serious: No
  Sender: FDA-Public Use
  Company Number: None

PATIENT
  Age: 71 Year
  Sex: Female
  Weight: 68.0396 kg

DRUGS (1)
  1. HYDROXYZINE HCL [Suspect]
     Indication: PRURITUS
     Dosage: 25 MG 1 TAB 3X DAY ORAL
     Route: 048
     Dates: start: 20090225

REACTIONS (2)
  - BACK PAIN [None]
  - CHEST PAIN [None]
